FAERS Safety Report 5374357-1 (Version None)
Quarter: 2007Q2

REPORT INFORMATION
  Report Type: 
  Country: None (occurrence: None)
  Receive Date: 20070629
  Receipt Date: 20070626
  Transmission Date: 20071010
  Serious: Yes (Death)
  Sender: FDA-Public Use
  Company Number: PHHO2007JP07069

PATIENT
  Sex: Male

DRUGS (5)
  1. SANDOSTATIN LAR [Suspect]
     Indication: GASTRINOMA
     Dosage: 30MG MONTHLY
     Route: 030
     Dates: start: 20051125, end: 20061030
  2. TAKEPRON [Concomitant]
  3. SUCRALFATE [Concomitant]
  4. ZYRTEC [Concomitant]
  5. MEXITIL [Concomitant]

REACTIONS (3)
  - HEPATIC FAILURE [None]
  - MALIGNANT NEOPLASM PROGRESSION [None]
  - METASTASES TO LIVER [None]
